FAERS Safety Report 25943176 (Version 1)
Quarter: 2025Q4

REPORT INFORMATION
  Report Type: Spontaneous
  Country: US (occurrence: None)
  Receive Date: 20251020
  Receipt Date: 20251020
  Transmission Date: 20260117
  Serious: Yes (Hospitalization)
  Sender: FDA-CTU
  Company Number: None

PATIENT
  Age: 36 Year
  Sex: Female

DRUGS (1)
  1. HUMIRA [Suspect]
     Active Substance: ADALIMUMAB
     Indication: Rheumatoid arthritis
     Dosage: ?40MG QOW

REACTIONS (6)
  - Urinary tract infection [None]
  - Therapy interrupted [None]
  - Appendicitis [None]
  - Rheumatoid arthritis [None]
  - Dry eye [None]
  - Insurance issue [None]
